FAERS Safety Report 9089627 (Version 1)
Quarter: 2013Q1

REPORT INFORMATION
  Report Type: Spontaneous
  Country: CA (occurrence: CA)
  Receive Date: 20130201
  Receipt Date: 20130201
  Transmission Date: 20140127
  Serious: Yes (Other)
  Sender: FDA-Public Use
  Company Number: CA-PURDUE-CAN-2013-0003704

PATIENT
  Age: 28 Year
  Sex: Male

DRUGS (1)
  1. OXYCONTIN TABLETS [Suspect]
     Indication: PRODUCT USED FOR UNKNOWN INDICATION

REACTIONS (5)
  - Drug dependence [Unknown]
  - Drug abuse [Unknown]
  - Aggression [Unknown]
  - Intentional self-injury [Unknown]
  - Amnesia [Unknown]
